FAERS Safety Report 7646826-2 (Version None)
Quarter: 2011Q3

REPORT INFORMATION
  Report Type: 
  Country: None (occurrence: None)
  Receive Date: 20110801
  Receipt Date: 20110718
  Transmission Date: 20111222
  Serious: Yes (Other)
  Sender: FDA-Public Use
  Company Number: ES-RANBAXY-2010R1-40746

PATIENT
  Age: 55 Year
  Sex: Female

DRUGS (3)
  1. ZOLPIDEM [Suspect]
     Indication: PRODUCT USED FOR UNKNOWN INDICATION
     Dosage: 10 MG AT BEDTIME
     Route: 065
  2. FLUOXETINE [Concomitant]
     Indication: AFFECTIVE DISORDER
     Dosage: UNK, UNK
     Route: 065
  3. ALPRAZOLAM [Concomitant]
     Indication: AFFECTIVE DISORDER
     Dosage: UNK, UNK
     Route: 065

REACTIONS (2)
  - ABNORMAL SLEEP-RELATED EVENT [None]
  - PSYCHOTIC DISORDER [None]
